FAERS Safety Report 23347160 (Version 1)
Quarter: 2023Q4

REPORT INFORMATION
  Report Type: Spontaneous
  Country: US (occurrence: None)
  Receive Date: 20231228
  Receipt Date: 20231228
  Transmission Date: 20240109
  Serious: No
  Sender: FDA-Public Use
  Company Number: None

PATIENT
  Age: 30 Year
  Sex: Male
  Weight: 63.5 kg

DRUGS (1)
  1. DUPIXENT [Suspect]
     Active Substance: DUPILUMAB
     Indication: Dermatitis atopic
     Dosage: OTHER FREQUENCY : EVERY 2 WEEKS;?
     Route: 058
     Dates: start: 20231026

REACTIONS (6)
  - Flushing [None]
  - Erythema [None]
  - Burning sensation [None]
  - Paraesthesia [None]
  - Alcohol use [None]
  - Alcohol interaction [None]

NARRATIVE: CASE EVENT DATE: 20231212
